FAERS Safety Report 9991618 (Version 2)
Quarter: 2014Q1

REPORT INFORMATION
  Report Type: Report from Study
  Country: ES (occurrence: ES)
  Receive Date: 20140310
  Receipt Date: 20140321
  Transmission Date: 20141002
  Serious: Yes (Death, Life-Threatening)
  Sender: FDA-Public Use
  Company Number: ES-MPIJNJ-2014JNJ000721

PATIENT
  Sex: 0

DRUGS (15)
  1. VELCADE [Suspect]
     Indication: PLASMA CELL MYELOMA
     Dosage: 2.2 MG, UNK
     Route: 058
     Dates: start: 20140203, end: 20140213
  2. REVLIMID [Suspect]
     Indication: PLASMA CELL MYELOMA
     Dosage: 25 MG, UNK
     Route: 048
     Dates: start: 20140203, end: 20140221
  3. DEXAMETHASONE [Suspect]
     Indication: PLASMA CELL MYELOMA
     Dosage: 40 MG, UNK
     Route: 042
     Dates: start: 20140128, end: 20140213
  4. OMEPRAZOLE [Concomitant]
  5. ONDANSETRON [Concomitant]
  6. MORPHINE [Concomitant]
  7. LORMETAZEPAM [Concomitant]
  8. FUROSEMIDE [Concomitant]
  9. FLUCONAZOLE [Concomitant]
  10. CIPROFLOXACIN [Concomitant]
  11. OXYCODONE [Concomitant]
  12. HALOPERIDOL [Concomitant]
  13. MEROPENEM [Concomitant]
  14. VANCOMYCIN [Concomitant]
  15. AMIKACIN [Concomitant]

REACTIONS (4)
  - Death [Fatal]
  - Neutropenia [Not Recovered/Not Resolved]
  - Respiratory tract infection [Not Recovered/Not Resolved]
  - Pneumonia [Unknown]
